FAERS Safety Report 7937565-9 (Version None)
Quarter: 2011Q4

REPORT INFORMATION
  Report Type: 
  Country: None (occurrence: None)
  Receive Date: 20111123
  Receipt Date: 20111111
  Transmission Date: 20120403
  Serious: Yes (Hospitalization, Other)
  Sender: FDA-Public Use
  Company Number: DE-UCBSA-045649

PATIENT
  Age: 16 Year
  Sex: Female

DRUGS (3)
  1. CARBAMAZEPINE [Suspect]
  2. VALPROATE SODIUM [Suspect]
  3. LEVETIRACETAM [Suspect]

REACTIONS (4)
  - SOPOR [None]
  - SUICIDE ATTEMPT [None]
  - SOMNOLENCE [None]
  - HYPOTENSION [None]
